FAERS Safety Report 4602068-6 (Version None)
Quarter: 2005Q2

REPORT INFORMATION
  Report Type: 
  Country: None (occurrence: None)
  Receive Date: 20050215
  Receipt Date: 20040902
  Transmission Date: 20051028
  Serious: Yes (Other)
  Sender: FDA-Public Use
  Company Number: 10061391-NA01-1

PATIENT
  Sex: 0

DRUGS (1)
  1. POTASSIUM CHLORIDE [Suspect]
     Dosage: 100ML, IV
     Route: 042

REACTIONS (2)
  - INJECTION SITE IRRITATION [None]
  - INJECTION SITE PAIN [None]
